FAERS Safety Report 6466928-6 (Version None)
Quarter: 2009Q4

REPORT INFORMATION
  Report Type: 
  Country: None (occurrence: None)
  Receive Date: 20091202
  Receipt Date: 20091123
  Transmission Date: 20100525
  Serious: Yes (Hospitalization)
  Sender: FDA-Public Use
  Company Number: FR-PFIZER INC-2009264784

PATIENT
  Age: 64 Year
  Sex: Male

DRUGS (13)
  1. EPIRUBICIN HCL [Suspect]
     Indication: GASTRIC CANCER
     Dosage: 327 MG
     Dates: start: 20070703
  2. EPIRUBICIN HCL [Suspect]
     Dosage: 241 MG
     Dates: start: 20070917
  3. CISPLATIN [Suspect]
     Indication: GASTRIC CANCER
     Dosage: 392 MG
     Dates: start: 20070703
  4. CISPLATIN [Suspect]
     Dosage: 289 MG
     Dates: start: 20070917
  5. CAPECITABINE [Suspect]
     Indication: GASTRIC CANCER
     Dosage: 164500 MG
     Dates: start: 20070703
  6. CAPECITABINE [Suspect]
     Dosage: 122500 MG
     Dates: start: 20070917
  7. FORLAX [Concomitant]
     Indication: CONSTIPATION
     Dosage: 1 DF, 1X/DAY
     Route: 048
     Dates: start: 20070725
  8. STILNOX [Concomitant]
     Indication: INSOMNIA
     Dosage: 1 DF, 1X/DAY
     Route: 048
     Dates: start: 20070620, end: 20070814
  9. HEPT-A-MYL [Concomitant]
     Indication: ORTHOSTATIC HYPOTENSION
     Dosage: 6 DF, 1X/DAY
     Route: 048
     Dates: start: 20070701
  10. LEXOMIL [Concomitant]
     Indication: ANXIETY
     Dosage: 0.5 DF, 1X/DAY
     Route: 048
     Dates: start: 20070815
  11. GRANOCYTE [Concomitant]
     Indication: NEUTROPENIA
     Dosage: 1 DF, 1X/DAY
     Route: 058
     Dates: start: 20070820, end: 20070825
  12. ZOPHREN [Concomitant]
     Indication: NAUSEA
     Dosage: 2 DF, 1X/DAY
     Route: 048
     Dates: start: 20070815, end: 20070819
  13. RHINADVIL [Concomitant]
     Indication: RHINITIS
     Dosage: UNK
     Route: 048
     Dates: start: 20070801

REACTIONS (3)
  - GENERAL PHYSICAL HEALTH DETERIORATION [None]
  - LOSS OF CONSCIOUSNESS [None]
  - MALAISE [None]
